FAERS Safety Report 10270139 (Version 1)
Quarter: 2014Q2

REPORT INFORMATION
  Report Type: Spontaneous
  Country: CA (occurrence: None)
  Receive Date: 20140625
  Receipt Date: 20140625
  Transmission Date: 20141212
  Serious: Yes (Death)
  Sender: FDA-Public Use
  Company Number: AUR-APL-2014-06630

PATIENT
  Age: 69 Year
  Sex: Female

DRUGS (9)
  1. PAROXETINE [Suspect]
     Indication: PRODUCT USED FOR UNKNOWN INDICATION
  2. LORAZEPAM [Suspect]
     Indication: PRODUCT USED FOR UNKNOWN INDICATION
  3. OXYCODONE HYDROCHLORIDE [Suspect]
     Indication: PRODUCT USED FOR UNKNOWN INDICATION
  4. ACETAMINOPHEN [Suspect]
     Indication: PRODUCT USED FOR UNKNOWN INDICATION
  5. DESIPRAMINE [Suspect]
     Indication: PRODUCT USED FOR UNKNOWN INDICATION
  6. DILTIAZEM [Suspect]
     Indication: PRODUCT USED FOR UNKNOWN INDICATION
  7. DIPHENHYDRAMINE [Suspect]
     Indication: PRODUCT USED FOR UNKNOWN INDICATION
  8. HYDROMORPHONE [Suspect]
     Indication: PRODUCT USED FOR UNKNOWN INDICATION
  9. IMIPRAMINE [Suspect]
     Indication: PRODUCT USED FOR UNKNOWN INDICATION

REACTIONS (5)
  - Antidepressant drug level above therapeutic [None]
  - Confusional state [None]
  - Dyspnoea [None]
  - Loss of consciousness [None]
  - Toxicity to various agents [None]
